FAERS Safety Report 7487351-1 (Version None)
Quarter: 2011Q2

REPORT INFORMATION
  Report Type: 
  Country: None (occurrence: None)
  Receive Date: 20110518
  Receipt Date: 20110513
  Transmission Date: 20111010
  Serious: Yes (Death, Hospitalization, Other)
  Sender: FDA-Public Use
  Company Number: US-ASTELLAS-2011US001238

PATIENT
  Sex: Male

DRUGS (2)
  1. PROGRAF [Suspect]
     Indication: LIVER TRANSPLANT
     Dosage: 0.5 MG, BID
     Route: 065
  2. PROGRAF [Suspect]
     Dosage: 1 MG, BID
     Route: 048
     Dates: start: 20090101

REACTIONS (19)
  - BILE DUCT STENOSIS [None]
  - HYPOTENSION [None]
  - HEPATORENAL SYNDROME [None]
  - DIARRHOEA [None]
  - CONFUSIONAL STATE [None]
  - ENCEPHALOPATHY [None]
  - CLOSTRIDIUM TEST POSITIVE [None]
  - VARICES OESOPHAGEAL [None]
  - HEPATICOJEJUNOSTOMY [None]
  - OXYGEN SATURATION DECREASED [None]
  - PANCREATITIS [None]
  - DEATH [None]
  - RENAL FAILURE ACUTE [None]
  - SEPSIS [None]
  - OEDEMA PERIPHERAL [None]
  - GASTROINTESTINAL HAEMORRHAGE [None]
  - PERITONITIS BACTERIAL [None]
  - HEPATIC FAILURE [None]
  - ASCITES [None]
